FAERS Safety Report 9163174 (Version 1)
Quarter: 2013Q1

REPORT INFORMATION
  Report Type: Spontaneous
  Country: AR (occurrence: None)
  Receive Date: 20130221
  Receipt Date: 20130221
  Transmission Date: 20140127
  Serious: Yes (Other)
  Sender: FDA-Public Use
  Company Number: ENTC2013-0067

PATIENT
  Sex: Male

DRUGS (1)
  1. STALEVO (LEVODOPA, CARBIDOPA, ENTACAPONE) [Suspect]
     Indication: PARKINSON^S DISEASE
     Dosage: 300 MG (150 MG, 2 IN 1 D)?

REACTIONS (5)
  - Fall [None]
  - Muscle rigidity [None]
  - Depressed mood [None]
  - Contusion [None]
  - Contusion [None]
